FAERS Safety Report 11159800 (Version 1)
Quarter: 2015Q2

REPORT INFORMATION
  Report Type: Spontaneous
  Country: TH (occurrence: TH)
  Receive Date: 20150603
  Receipt Date: 20150603
  Transmission Date: 20150821
  Serious: Yes (Other)
  Sender: FDA-Public Use
  Company Number: TH-PFIZER INC-2015181817

PATIENT
  Age: 2 Month
  Sex: Male

DRUGS (5)
  1. DILANTIN [Suspect]
     Active Substance: PHENYTOIN
     Indication: GENERALISED TONIC-CLONIC SEIZURE
     Dosage: 20 MG/KG, SINGLE (LOADING DOSE)
     Route: 042
  2. DILANTIN [Suspect]
     Active Substance: PHENYTOIN
     Dosage: 10 MG/KG, UNK
     Route: 042
  3. DILANTIN [Suspect]
     Active Substance: PHENYTOIN
     Dosage: UNK (SECOND LOADING DOSE)
     Route: 042
  4. DILANTIN [Suspect]
     Active Substance: PHENYTOIN
     Dosage: 7 MG/KG, DAILY (MAINTENANCE DOSE)
     Route: 042
  5. DILANTIN [Suspect]
     Active Substance: PHENYTOIN
     Dosage: 10 MG/KG, DAILY (MAINTENANCE DOSE)
     Route: 042

REACTIONS (1)
  - Toxicity to various agents [Recovering/Resolving]
